FAERS Safety Report 4968371-5 (Version None)
Quarter: 2006Q2

REPORT INFORMATION
  Report Type: 
  Country: None (occurrence: None)
  Receive Date: 20060410
  Receipt Date: 20060208
  Transmission Date: 20061013
  Serious: Yes (Death)
  Sender: FDA-Public Use
  Company Number: US-NOVOPROD-250736

PATIENT
  Age: 62 Year
  Sex: Female
  Weight: 45 kg

DRUGS (4)
  1. PLATELETS [Concomitant]
     Indication: OPERATIVE HAEMORRHAGE
     Dosage: UNKNOWN
     Route: 042
     Dates: start: 20060201, end: 20060201
  2. NOVOSEVEN [Suspect]
     Dosage: 50 UG/KG, SINGLE
     Route: 042
     Dates: start: 20060201, end: 20060201
  3. FRESH FROZEN PLASMA [Concomitant]
     Indication: OPERATIVE HAEMORRHAGE
     Dates: start: 20060201, end: 20060201
  4. KRIOPRECIPITAT [Concomitant]
     Indication: OPERATIVE HAEMORRHAGE

REACTIONS (1)
  - CEREBRAL INFARCTION [None]
